FAERS Safety Report 6882336-8 (Version None)
Quarter: 2010Q3

REPORT INFORMATION
  Report Type: 
  Country: None (occurrence: None)
  Receive Date: 20100729
  Receipt Date: 20100304
  Transmission Date: 20110219
  Serious: No
  Sender: FDA-Public Use
  Company Number: US-MYLANLABS-2010S1001613

PATIENT
  Age: 54 Year
  Sex: Female

DRUGS (3)
  1. LEVOTHYROXINE SODIUM [Suspect]
     Indication: HYPOTHYROIDISM
     Route: 048
     Dates: start: 20040901, end: 20100128
  2. VITAMIN B-12 [Concomitant]
     Route: 030
  3. BISOPROLOL FUMARATE AND HYDROCHLOROTHIAZIDE [Concomitant]

REACTIONS (8)
  - ALOPECIA [None]
  - BLOOD THYROID STIMULATING HORMONE INCREASED [None]
  - DECREASED APPETITE [None]
  - DRY SKIN [None]
  - DYSPHONIA [None]
  - FEELING COLD [None]
  - NAUSEA [None]
  - THYROXINE DECREASED [None]
